FAERS Safety Report 14122784 (Version 9)
Quarter: 2019Q4

REPORT INFORMATION
  Report Type: Report from Study
  Country: DE (occurrence: DE)
  Receive Date: 20171025
  Receipt Date: 20191121
  Transmission Date: 20200122
  Serious: Yes (Hospitalization, Other)
  Sender: FDA-Public Use
  Company Number: DE-ROCHE-2000599

PATIENT
  Age: 41 Year
  Sex: Male
  Weight: 88 kg

DRUGS (12)
  1. PANTOZOL [Concomitant]
     Active Substance: PANTOPRAZOLE SODIUM
     Route: 048
     Dates: start: 20170927
  2. VEMURAFENIB. [Suspect]
     Active Substance: VEMURAFENIB
     Indication: MALIGNANT MELANOMA
     Dosage: DAILY ON DAYS 1 TO 28 OF EACH CYCLE (CYCLE = 28 DAYS)?ON 21/SEP/2017 AND 22/SEP/2017, THE PATIENT RE
     Route: 048
     Dates: start: 20170602
  3. MEKINIST [Concomitant]
     Active Substance: TRAMETINIB DIMETHYL SULFOXIDE
     Route: 048
     Dates: start: 20171206, end: 20180305
  4. TAFINLAR [Concomitant]
     Active Substance: DABRAFENIB MESYLATE
     Route: 048
     Dates: start: 20171206, end: 20180305
  5. NIVOLUMAB [Concomitant]
     Active Substance: NIVOLUMAB
     Route: 042
     Dates: start: 20180306
  6. CORTISON [Concomitant]
     Active Substance: CORTISONE ACETATE
     Indication: ERYTHEMA NODOSUM
     Route: 061
     Dates: start: 201708, end: 20170818
  7. COBIMETINIB. [Suspect]
     Active Substance: COBIMETINIB
     Indication: MALIGNANT MELANOMA
     Dosage: 60 MG (THREE, 20 MG TABLETS), ON DAYS 1 TO 21, OF EACH 28-DAY CYCLE. ?ON 21/SEP/2017 AND 22/SEP/2017
     Route: 048
     Dates: start: 20170602
  8. IMODIUM [Concomitant]
     Active Substance: LOPERAMIDE HYDROCHLORIDE
     Indication: DIARRHOEA
     Route: 048
     Dates: start: 20170602
  9. BLINDED ATEZOLIZUMAB [Suspect]
     Active Substance: ATEZOLIZUMAB
     Indication: MALIGNANT MELANOMA
     Dosage: MOST RECENT DOSE ON 11/AUG/2017
     Route: 042
     Dates: start: 20170714
  10. FLUTIFORM [Concomitant]
     Active Substance: FLUTICASONE PROPIONATE\FORMOTEROL FUMARATE
     Route: 065
     Dates: start: 20170602
  11. SILYMARIN [SILYBUM MARIANUM] [Concomitant]
     Route: 048
     Dates: start: 20170825, end: 20170830
  12. CURCUMIN [Concomitant]
     Active Substance: CURCUMIN
     Route: 048
     Dates: start: 20170825, end: 20170830

REACTIONS (3)
  - Hepatic enzyme increased [Recovered/Resolved]
  - Autoimmune hepatitis [Recovered/Resolved]
  - Autoimmune pancreatitis [Recovered/Resolved]

NARRATIVE: CASE EVENT DATE: 20170925
